FAERS Safety Report 17368561 (Version 1)
Quarter: 2020Q1

REPORT INFORMATION
  Report Type: Spontaneous
  Country: US (occurrence: US)
  Receive Date: 20200120
  Receipt Date: 20200120
  Transmission Date: 20200409
  Serious: Yes (Hospitalization)
  Sender: FDA-Public Use
  Company Number: None

PATIENT
  Age: 68 Year
  Sex: Male

DRUGS (1)
  1. HUMIRA [Suspect]
     Active Substance: ADALIMUMAB
     Dosage: ?          OTHER FREQUENCY:EVERY 14 DAYS;?
     Route: 058

REACTIONS (3)
  - Pneumonia [None]
  - Influenza [None]
  - Therapy cessation [None]

NARRATIVE: CASE EVENT DATE: 20200118
